FAERS Safety Report 6418928-X (Version None)
Quarter: 2009Q4

REPORT INFORMATION
  Report Type: 
  Country: None (occurrence: None)
  Receive Date: 20091029
  Receipt Date: 20091026
  Transmission Date: 20100525
  Serious: Yes (Other)
  Sender: FDA-Public Use
  Company Number: US-ALLERGAN-0911062US

PATIENT
  Age: 68 Year
  Sex: Female
  Weight: 54.422 kg

DRUGS (4)
  1. RESTASIS [Suspect]
     Indication: DRY EYE
     Dosage: 1 GTT, BID
     Route: 047
     Dates: start: 20090529, end: 20090615
  2. RESTASIS [Suspect]
  3. IMDUR [Concomitant]
     Indication: CARDIAC DISORDER
     Dosage: UNK
  4. ASPIRIN [Concomitant]
     Indication: CARDIAC DISORDER
     Dosage: 81 MG, QD

REACTIONS (4)
  - EYE IRRITATION [None]
  - FOREIGN BODY SENSATION IN EYES [None]
  - VISION BLURRED [None]
  - VISUAL ACUITY REDUCED [None]
